FAERS Safety Report 17293783 (Version 3)
Quarter: 2024Q3

REPORT INFORMATION
  Report Type: Report from Study
  Country: US (occurrence: US)
  Receive Date: 20200121
  Receipt Date: 20240816
  Transmission Date: 20241016
  Serious: No
  Sender: SANOFI AVENTIS
  Company Number: US-SA-2020SA014708

PATIENT
  Age: 43 Year
  Sex: Female

DRUGS (1)
  1. DUPIXENT [Suspect]
     Active Substance: DUPILUMAB
     Indication: Dermatitis atopic
     Dosage: 300 MG, QOW
     Route: 058
     Dates: start: 201909

REACTIONS (4)
  - Herpes zoster [Recovering/Resolving]
  - Eye disorder [Unknown]
  - Dry eye [Unknown]
  - Intercepted product storage error [Unknown]

NARRATIVE: CASE EVENT DATE: 20190101
